FAERS Safety Report 21964241 (Version 1)
Quarter: 2023Q1

REPORT INFORMATION
  Report Type: Spontaneous
  Country: US (occurrence: None)
  Receive Date: 20230206
  Receipt Date: 20230206
  Transmission Date: 20230418
  Serious: Yes (Life-Threatening, Hospitalization)
  Sender: FDA-Public Use
  Company Number: None

PATIENT
  Age: 44 Year
  Sex: Male
  Weight: 107.1 kg

DRUGS (2)
  1. CITROMA MAGNESIUM CITRATE [Suspect]
     Active Substance: MAGNESIUM CITRATE
     Indication: Dyspepsia
     Dates: start: 20210604, end: 20211020
  2. CITROMA MAGNESIUM CITRATE [Suspect]
     Active Substance: MAGNESIUM CITRATE
     Indication: Constipation

REACTIONS (4)
  - Gastritis [None]
  - Gastrooesophageal reflux disease [None]
  - Gastrooesophageal reflux disease [None]
  - Barrett^s oesophagus [None]

NARRATIVE: CASE EVENT DATE: 20221031
